FAERS Safety Report 6059979-7 (Version None)
Quarter: 2009Q1

REPORT INFORMATION
  Report Type: 
  Country: None (occurrence: None)
  Receive Date: 20090130
  Receipt Date: 20090126
  Transmission Date: 20090719
  Serious: No
  Sender: FDA-Public Use
  Company Number: US-B.I. PHARMACEUTICALS,INC./RIDGEFIELD-2009-BP-00965BP

PATIENT
  Sex: Female

DRUGS (3)
  1. SPIRIVA [Suspect]
     Indication: EMPHYSEMA
     Dosage: 18MCG
     Route: 055
     Dates: start: 20040101
  2. FORADIL [Suspect]
     Indication: EMPHYSEMA
     Dates: end: 20081201
  3. FLOVENT [Suspect]
     Indication: EMPHYSEMA
     Dates: end: 20081201

REACTIONS (2)
  - BALANCE DISORDER [None]
  - DIZZINESS [None]
